FAERS Safety Report 5645660-2 (Version None)
Quarter: 2008Q1

REPORT INFORMATION
  Report Type: 
  Country: None (occurrence: None)
  Receive Date: 20080131
  Receipt Date: 20071217
  Transmission Date: 20080703
  Serious: No
  Sender: FDA-Public Use
  Company Number: 163-21880-07120921

PATIENT
  Age: 54 Year
  Sex: Female

DRUGS (2)
  1. REVLIMID [Suspect]
     Dosage: 25 MG, QD X21, ORAL ; 10 MG, QD X21, ORAL
     Route: 048
     Dates: start: 20070123, end: 20071001
  2. REVLIMID [Suspect]
     Dosage: 25 MG, QD X21, ORAL ; 10 MG, QD X21, ORAL
     Route: 048
     Dates: start: 20071126

REACTIONS (2)
  - NEUROPATHY PERIPHERAL [None]
  - VISUAL DISTURBANCE [None]
